FAERS Safety Report 7699494-8 (Version None)
Quarter: 2011Q3

REPORT INFORMATION
  Report Type: 
  Country: None (occurrence: None)
  Receive Date: 20110820
  Receipt Date: 20110224
  Transmission Date: 20111222
  Serious: No
  Sender: FDA-Public Use
  Company Number: US-ALLERGAN-1102725US

PATIENT
  Sex: Male

DRUGS (1)
  1. SANCTURA XR [Suspect]
     Indication: PRODUCT USED FOR UNKNOWN INDICATION
     Dosage: 60 MG, QAM
     Route: 048
     Dates: start: 20110212, end: 20110223

REACTIONS (2)
  - URINARY RETENTION [None]
  - DYSURIA [None]
